FAERS Safety Report 9913642 (Version 1)
Quarter: 2014Q1

REPORT INFORMATION
  Report Type: Spontaneous
  Country: KR (occurrence: KR)
  Receive Date: 20140220
  Receipt Date: 20140220
  Transmission Date: 20141002
  Serious: Yes (Hospitalization, Other)
  Sender: FDA-Public Use
  Company Number: KR-009507513-1402KOR008985

PATIENT
  Sex: Female

DRUGS (1)
  1. FOSAMAX 70MG TABLET [Suspect]
     Dosage: UNK
     Route: 048

REACTIONS (2)
  - Surgery [Recovered/Resolved]
  - Osteonecrosis of jaw [Recovered/Resolved]
